FAERS Safety Report 9851986 (Version 1)
Quarter: 2014Q1

REPORT INFORMATION
  Report Type: Spontaneous
  Country: DE (occurrence: DE)
  Receive Date: 20140129
  Receipt Date: 20140129
  Transmission Date: 20141002
  Serious: Yes (Other)
  Sender: FDA-Public Use
  Company Number: GXKR2014DE000664

PATIENT
  Sex: Female

DRUGS (1)
  1. CIPRO 1A PHARMA [Suspect]
     Dosage: UNK UKN, UNK
     Route: 065

REACTIONS (1)
  - Retinal detachment [Unknown]
